FAERS Safety Report 23645817 (Version 1)
Quarter: 2024Q1

REPORT INFORMATION
  Report Type: Spontaneous
  Country: US (occurrence: US)
  Receive Date: 20240319
  Receipt Date: 20240319
  Transmission Date: 20240410
  Serious: No
  Sender: FDA-Public Use
  Company Number: US-BRISTOL-MYERS SQUIBB COMPANY-2024-042777

PATIENT
  Age: 71 Year
  Sex: Male

DRUGS (2)
  1. REVLIMID [Suspect]
     Active Substance: LENALIDOMIDE
     Indication: Follicular lymphoma
     Dosage: FREQ: 1 CAPSULE BY MOUTH DAILY FOR 21 DAYS AND ONE REST WEEK.
     Route: 048
     Dates: start: 20240313
  2. RITUXAN [Concomitant]
     Active Substance: RITUXIMAB
     Indication: Product used for unknown indication
     Dosage: IV THERAPY
     Route: 042

REACTIONS (2)
  - Pruritus [Unknown]
  - Pruritus genital [Unknown]

NARRATIVE: CASE EVENT DATE: 20240314
